FAERS Safety Report 13735734 (Version 1)
Quarter: 2017Q3

REPORT INFORMATION
  Report Type: Spontaneous
  Country: US (occurrence: US)
  Receive Date: 20170708
  Receipt Date: 20170708
  Transmission Date: 20171127
  Serious: No
  Sender: FDA-Public Use
  Company Number: None

PATIENT
  Age: 32 Year
  Sex: Female
  Weight: 92.25 kg

DRUGS (9)
  1. INOSITOL [Concomitant]
     Active Substance: INOSITOL
  2. SERTRALINE HCL [Suspect]
     Active Substance: SERTRALINE HYDROCHLORIDE
     Indication: ANXIETY
     Dosage: ?          OTHER STRENGTH:MG;QUANTITY:30 TABLET(S);?
     Route: 048
     Dates: start: 20170503, end: 20170504
  3. MILK THISTLE [Concomitant]
     Active Substance: MILK THISTLE
  4. MULTIVITAMIN [Concomitant]
     Active Substance: VITAMINS
  5. MAGNESIUM THREONATE [Concomitant]
  6. BIOTIN [Concomitant]
     Active Substance: BIOTIN
  7. SERTRALINE HCL [Suspect]
     Active Substance: SERTRALINE HYDROCHLORIDE
     Indication: INSOMNIA
     Dosage: ?          OTHER STRENGTH:MG;QUANTITY:30 TABLET(S);?
     Route: 048
     Dates: start: 20170503, end: 20170504
  8. VITAMIN D [Concomitant]
     Active Substance: CHOLECALCIFEROL
  9. CHOLINE [Concomitant]
     Active Substance: CHOLINE

REACTIONS (15)
  - Feeling hot [None]
  - Middle insomnia [None]
  - Nausea [None]
  - Diarrhoea [None]
  - Malaise [None]
  - Influenza like illness [None]
  - Drug ineffective [None]
  - Chest discomfort [None]
  - Migraine [None]
  - Cold sweat [None]
  - Hot flush [None]
  - Skin discomfort [None]
  - Insomnia [None]
  - Skin tightness [None]
  - Chills [None]

NARRATIVE: CASE EVENT DATE: 20170504
